FAERS Safety Report 8808117 (Version 2)
Quarter: 2012Q4

REPORT INFORMATION
  Report Type: 
  Country: IT (occurrence: IT)
  Receive Date: 20120925
  Receipt Date: 20120928
  Transmission Date: 20130627
  Serious: Yes (Life-Threatening, Other)
  Sender: FDA-Public Use
  Company Number: PHHY2012IT081736

PATIENT
  Age: 46 Year
  Sex: Female

DRUGS (3)
  1. CARBOPLATIN [Suspect]
     Indication: ACUTE MYELOID LEUKAEMIA
  2. ETOPOSIDE [Suspect]
     Indication: ACUTE MYELOID LEUKAEMIA
  3. IFOSFAMIDE [Suspect]
     Indication: ACUTE MYELOID LEUKAEMIA

REACTIONS (13)
  - Neutropenia [Recovered/Resolved]
  - Cardiopulmonary failure [Recovered/Resolved]
  - Acute abdomen [Recovered/Resolved]
  - Aspergillosis [Recovered/Resolved]
  - Septic shock [Recovered/Resolved]
  - Pyrexia [Recovered/Resolved]
  - Diarrhoea [Recovered/Resolved]
  - Intestinal obstruction [Recovered/Resolved]
  - General physical health deterioration [Recovered/Resolved]
  - Pleural effusion [Recovered/Resolved]
  - Ascites [Recovered/Resolved]
  - Intestinal haemorrhage [Recovered/Resolved]
  - Necrotising colitis [Recovered/Resolved]
